FAERS Safety Report 13792056 (Version 1)
Quarter: 2017Q3

REPORT INFORMATION
  Report Type: Spontaneous
  Country: US (occurrence: US)
  Receive Date: 20170725
  Receipt Date: 20170725
  Transmission Date: 20171127
  Serious: No
  Sender: FDA-Public Use
  Company Number: US-ROCHE-1899680

PATIENT
  Sex: Female
  Weight: 49.94 kg

DRUGS (1)
  1. BONIVA [Suspect]
     Active Substance: IBANDRONATE SODIUM
     Indication: OSTEOPOROSIS
     Dosage: ONE PILL ONCE A MONTH BY MOUTH
     Route: 048
     Dates: start: 2010

REACTIONS (3)
  - Bone loss [Unknown]
  - Gingivitis [Unknown]
  - Bone pain [Unknown]
